FAERS Safety Report 22320990 (Version 3)
Quarter: 2024Q1

REPORT INFORMATION
  Report Type: Spontaneous
  Country: TR (occurrence: TR)
  Receive Date: 20230515
  Receipt Date: 20240212
  Transmission Date: 20240409
  Serious: Yes (Hospitalization)
  Sender: FDA-Public Use
  Company Number: TR-China IPSEN SC-2023-10443

PATIENT
  Age: 48 Year
  Sex: Female
  Weight: 70 kg

DRUGS (4)
  1. DYSPORT [Suspect]
     Active Substance: ABOBOTULINUMTOXINA
     Indication: Hyperhidrosis
     Route: 030
     Dates: start: 20230414, end: 20230414
  2. DYSPORT [Suspect]
     Active Substance: ABOBOTULINUMTOXINA
     Indication: Eyelid erosion
  3. DYSPORT [Suspect]
     Active Substance: ABOBOTULINUMTOXINA
     Indication: Skin wrinkling
  4. DYSPORT [Suspect]
     Active Substance: ABOBOTULINUMTOXINA
     Indication: Off label use

REACTIONS (15)
  - Condition aggravated [Unknown]
  - Muscle spasms [Unknown]
  - Vision blurred [Unknown]
  - Asthenia [Unknown]
  - Fatigue [Unknown]
  - Urinary incontinence [Recovered/Resolved]
  - Eyelid ptosis [Not Recovered/Not Resolved]
  - Dysphagia [Recovering/Resolving]
  - Slow speech [Not Recovered/Not Resolved]
  - Dyspnoea [Unknown]
  - Gait disturbance [Unknown]
  - Head discomfort [Recovering/Resolving]
  - Headache [Recovering/Resolving]
  - Dysphonia [Recovering/Resolving]
  - Off label use [Unknown]

NARRATIVE: CASE EVENT DATE: 20230414
